FAERS Safety Report 16136369 (Version 2)
Quarter: 2022Q1

REPORT INFORMATION
  Report Type: Report from Study
  Country: US (occurrence: US)
  Receive Date: 20190329
  Receipt Date: 20220314
  Transmission Date: 20220423
  Serious: Yes (Hospitalization, Other)
  Sender: FDA-Public Use
  Company Number: US-SHIRE-US201909725

PATIENT
  Age: 62 Year
  Sex: Female

DRUGS (2)
  1. HUMAN IMMUNOGLOBULIN G [Suspect]
     Active Substance: HUMAN IMMUNOGLOBULIN G
     Indication: Primary immunodeficiency syndrome
     Dosage: 70 MILLILITER, 4X A MONTH
     Route: 058
  2. HUMAN IMMUNOGLOBULIN G [Suspect]
     Active Substance: HUMAN IMMUNOGLOBULIN G
     Dosage: 7.5 GRAM, 1/WEEK
     Route: 065

REACTIONS (8)
  - Nasal congestion [Unknown]
  - Fatigue [Unknown]
  - Hypersensitivity [Unknown]
  - Pneumonia [Unknown]
  - Bronchitis [Unknown]
  - Product colour issue [Unknown]
  - Liquid product physical issue [Unknown]
  - Rash [Unknown]

NARRATIVE: CASE EVENT DATE: 20190321
